FAERS Safety Report 10447662 (Version 1)
Quarter: 2014Q3

REPORT INFORMATION
  Report Type: Spontaneous
  Country: US (occurrence: None)
  Receive Date: 20140910
  Receipt Date: 20140910
  Transmission Date: 20150326
  Serious: Yes (Hospitalization)
  Sender: FDA-Public Use
  Company Number: None

PATIENT
  Age: 58 Year
  Sex: Male
  Weight: 102.9 kg

DRUGS (1)
  1. GEMCITABINE HYDROCHLORIDE. [Suspect]
     Active Substance: GEMCITABINE HYDROCHLORIDE
     Dosage: CYCLE: WEEKLY FOR 3 WEEKS, OFF 1 WEEK
     Dates: start: 20140812, end: 20140826

REACTIONS (6)
  - Liver abscess [None]
  - Chills [None]
  - Hypotension [None]
  - Nausea [None]
  - Dizziness [None]
  - Sepsis [None]

NARRATIVE: CASE EVENT DATE: 20140826
